FAERS Safety Report 5054271-1 (Version None)
Quarter: 2006Q3

REPORT INFORMATION
  Report Type: 
  Country: None (occurrence: None)
  Receive Date: 20060713
  Receipt Date: 20060628
  Transmission Date: 20061208
  Serious: Yes (Hospitalization)
  Sender: FDA-Public Use
  Company Number: SPI200600052

PATIENT

DRUGS (1)
  1. AMITIZA [Suspect]
     Dosage: 24 MCG, ORAL
     Route: 048

REACTIONS (1)
  - ABDOMINAL DISTENSION [None]
